FAERS Safety Report 7490013-8 (Version None)
Quarter: 2011Q2

REPORT INFORMATION
  Report Type: 
  Country: None (occurrence: None)
  Receive Date: 20110512
  Receipt Date: 20110505
  Transmission Date: 20111010
  Serious: Yes (Other)
  Sender: FDA-Public Use
  Company Number: PHHY2011KR34404

PATIENT
  Age: 69 Year
  Sex: Male

DRUGS (1)
  1. VISUDYNE [Suspect]
     Indication: PROPHYLAXIS AGAINST TRANSPLANT REJECTION
     Dosage: 6 MG/M^2 ONCE IV
     Route: 042

REACTIONS (3)
  - CORNEAL TRANSPLANT [None]
  - KERATITIS HERPETIC [None]
  - INFECTION REACTIVATION [None]
